FAERS Safety Report 26172113 (Version 1)
Quarter: 2025Q4

REPORT INFORMATION
  Report Type: Spontaneous
  Country: CN (occurrence: CN)
  Receive Date: 20251218
  Receipt Date: 20251218
  Transmission Date: 20260118
  Serious: Yes (Hospitalization)
  Sender: BAXTER
  Company Number: None

PATIENT
  Age: 69 Year
  Sex: Female
  Weight: 68 kg

DRUGS (4)
  1. CYCLOPHOSPHAMIDE [Suspect]
     Active Substance: CYCLOPHOSPHAMIDE
     Indication: Breast cancer female
     Dosage: 800 MG, QD (WITH 0.9% SODIUM CHLORIDE INJECTION)
     Route: 041
     Dates: start: 20251118, end: 20251118
  2. SODIUM CHLORIDE [Suspect]
     Active Substance: SODIUM CHLORIDE
     Dosage: 50 ML, QD (ONCE A DAY), (INJECTION), WITH CYCLOPHOSPHAMIDE FOR INJECTION
     Route: 041
     Dates: start: 20251118, end: 20251118
  3. SODIUM CHLORIDE [Suspect]
     Active Substance: SODIUM CHLORIDE
     Dosage: 250 ML, QD (ONCE A DAY), (INJECTION), WITH DOCETAXEL INJECTION
     Route: 041
     Dates: start: 20251118, end: 20251118
  4. DOCETAXEL [Suspect]
     Active Substance: DOCETAXEL
     Indication: Breast cancer female
     Dosage: 110 MG, QD (WITH 0.9% SODIUM CHLORIDE INJECTION)
     Route: 041
     Dates: start: 20251118, end: 20251118

REACTIONS (1)
  - Platelet count decreased [Recovering/Resolving]
